FAERS Safety Report 8986333 (Version 1)
Quarter: 2012Q4

REPORT INFORMATION
  Report Type: Report from Study
  Country: FR (occurrence: FR)
  Receive Date: 20121226
  Receipt Date: 20121226
  Transmission Date: 20130627
  Serious: Yes (Hospitalization)
  Sender: FDA-Public Use
  Company Number: FR-ROCHE-1155989

PATIENT
  Age: 38 Year
  Sex: Male

DRUGS (13)
  1. RITUXIMAB [Suspect]
     Indication: MANTLE CELL LYMPHOMA
     Route: 041
     Dates: start: 20121002, end: 20121002
  2. CARMUSTINE [Suspect]
     Indication: MANTLE CELL LYMPHOMA
     Route: 042
     Dates: start: 20121003, end: 20121003
  3. ETOPOSIDE [Suspect]
     Indication: MANTLE CELL LYMPHOMA
     Route: 042
     Dates: start: 20121004, end: 20121007
  4. CYTARABINE [Suspect]
     Indication: MANTLE CELL LYMPHOMA
     Route: 042
     Dates: start: 20121004, end: 20121007
  5. MELPHALAN [Suspect]
     Indication: MANTLE CELL LYMPHOMA
     Route: 042
     Dates: start: 20121008, end: 20121008
  6. FLAGYL [Concomitant]
     Route: 065
     Dates: start: 2012
  7. FLAGYL [Concomitant]
     Route: 065
  8. CANCIDAS [Concomitant]
     Route: 065
     Dates: start: 2012
  9. INEXIUM [Concomitant]
  10. TIENAM [Concomitant]
  11. CIFLOX [Concomitant]
     Route: 065
  12. BACTRIM [Concomitant]
     Indication: INFECTION PROPHYLAXIS
  13. VALACICLOVIR [Concomitant]
     Indication: INFECTION PROPHYLAXIS

REACTIONS (5)
  - Neutropenia [Recovered/Resolved]
  - Pneumonia [Recovered/Resolved]
  - Respiratory distress [Recovered/Resolved]
  - Febrile bone marrow aplasia [Recovered/Resolved]
  - Mucosal inflammation [Recovered/Resolved]
